FAERS Safety Report 6017976-1 (Version None)
Quarter: 2008Q4

REPORT INFORMATION
  Report Type: 
  Country: None (occurrence: None)
  Receive Date: 20081223
  Receipt Date: 20081219
  Transmission Date: 20090506
  Serious: Yes (Other)
  Sender: FDA-Public Use
  Company Number: A0757358A

PATIENT
  Age: 79 Year
  Sex: Female

DRUGS (3)
  1. VALTREX [Suspect]
     Dosage: 1000MG THREE TIMES PER DAY
     Route: 048
     Dates: start: 20081021
  2. MIRAPEX [Suspect]
     Indication: PARKINSON'S DISEASE
  3. CIPRO [Concomitant]
     Indication: IMPETIGO
     Dosage: 500MG TWICE PER DAY
     Dates: start: 20081023

REACTIONS (11)
  - ADVERSE EVENT [None]
  - CONDITION AGGRAVATED [None]
  - DRUG INTERACTION [None]
  - DYSKINESIA [None]
  - DYSPNOEA [None]
  - IMMOBILE [None]
  - INJURY [None]
  - MENTAL STATUS CHANGES [None]
  - PARKINSON'S DISEASE [None]
  - THIRST [None]
  - URINARY TRACT DISORDER [None]
